FAERS Safety Report 6480970-0 (Version None)
Quarter: 2009Q4

REPORT INFORMATION
  Report Type: 
  Country: None (occurrence: None)
  Receive Date: 20091208
  Receipt Date: 20091203
  Transmission Date: 20100525
  Serious: No
  Sender: FDA-Public Use
  Company Number: US-B.I. PHARMACEUTICALS,INC./RIDGEFIELD-2009-BP-13989BP

PATIENT
  Age: 76 Year
  Sex: Male

DRUGS (2)
  1. FLOMAX [Suspect]
     Indication: BENIGN PROSTATIC HYPERPLASIA
     Dosage: 0.4 MG
     Route: 048
     Dates: start: 20080101
  2. FOLBEE [Concomitant]

REACTIONS (3)
  - CYSTITIS [None]
  - EJACULATION FAILURE [None]
  - SEMEN VOLUME DECREASED [None]
